FAERS Safety Report 5199147-4 (Version None)
Quarter: 2006Q4

REPORT INFORMATION
  Report Type: 
  Country: None (occurrence: None)
  Receive Date: 20060919
  Receipt Date: 20060501
  Transmission Date: 20070319
  Serious: Yes (Hospitalization)
  Sender: FDA-Public Use
  Company Number: PIR# 0605001

PATIENT
  Age: 10 Month
  Sex: Male
  Weight: 3.1752 kg

DRUGS (9)
  1. HEPATAMINE 8% [Suspect]
     Indication: MALABSORPTION
     Dosage: IV-PICC LINE
     Dates: start: 20060425, end: 20060426
  2. NA ACETATE [Concomitant]
  3. SODIUM CHLORIDE [Concomitant]
  4. POTASSIUM CHLORIDE [Concomitant]
  5. HEPARIN [Concomitant]
  6. STERILE WATER [Concomitant]
  7. K ACETATE [Concomitant]
  8. CA GLUCONATE [Concomitant]
  9. M.T.E.-4 [Concomitant]

REACTIONS (2)
  - DRUG CHEMICAL INCOMPATIBILITY [None]
  - LABELLED DRUG-DRUG INTERACTION MEDICATION ERROR [None]
